FAERS Safety Report 9176159 (Version 1)
Quarter: 2013Q1

REPORT INFORMATION
  Report Type: Spontaneous
  Country: GB (occurrence: GB)
  Receive Date: 20130321
  Receipt Date: 20130321
  Transmission Date: 20140127
  Serious: Yes (Other)
  Sender: FDA-Public Use
  Company Number: PHHY2013GB024718

PATIENT
  Sex: 0

DRUGS (1)
  1. CIPROFLOXACIN [Suspect]

REACTIONS (2)
  - Ligament injury [Unknown]
  - Tendon injury [Unknown]
